FAERS Safety Report 24263362 (Version 2)
Quarter: 2024Q3

REPORT INFORMATION
  Report Type: Spontaneous
  Country: AU (occurrence: AU)
  Receive Date: 20240829
  Receipt Date: 20240903
  Transmission Date: 20241016
  Serious: Yes (Other)
  Sender: PFIZER
  Company Number: AU-MLMSERVICE-20240819-PI163609-00099-1

PATIENT
  Age: 14 Month
  Sex: Female

DRUGS (13)
  1. CIPROFLOXACIN [Suspect]
     Active Substance: CIPROFLOXACIN
     Indication: Mediastinitis
     Dosage: UNK
  2. CIPROFLOXACIN [Suspect]
     Active Substance: CIPROFLOXACIN
     Indication: Atypical mycobacterial infection
  3. CIPROFLOXACIN [Suspect]
     Active Substance: CIPROFLOXACIN
     Indication: Mycobacterium avium complex infection
  4. ETHAMBUTOL [Suspect]
     Active Substance: ETHAMBUTOL HYDROCHLORIDE
     Indication: Atypical mycobacterial infection
     Dosage: UNK
  5. ETHAMBUTOL [Suspect]
     Active Substance: ETHAMBUTOL HYDROCHLORIDE
     Indication: Mycobacterium avium complex infection
  6. ETHAMBUTOL [Suspect]
     Active Substance: ETHAMBUTOL HYDROCHLORIDE
     Indication: Mediastinitis
  7. CLARITHROMYCIN [Concomitant]
     Active Substance: CLARITHROMYCIN
     Indication: Mediastinitis
     Dosage: UNK
  8. CLARITHROMYCIN [Concomitant]
     Active Substance: CLARITHROMYCIN
     Indication: Mycobacterium avium complex infection
  9. CLARITHROMYCIN [Concomitant]
     Active Substance: CLARITHROMYCIN
     Indication: Atypical mycobacterial infection
  10. RIFAMPIN [Concomitant]
     Active Substance: RIFAMPIN
     Indication: Atypical mycobacterial infection
     Dosage: UNK
  11. RIFAMPIN [Concomitant]
     Active Substance: RIFAMPIN
     Indication: Mycobacterium avium complex infection
  12. RIFAMPIN [Concomitant]
     Active Substance: RIFAMPIN
     Indication: Acid fast bacilli infection
  13. RIFAMPIN [Concomitant]
     Active Substance: RIFAMPIN
     Indication: Mediastinitis

REACTIONS (2)
  - Neurotoxicity [Unknown]
  - Off label use [Unknown]
